FAERS Safety Report 17307436 (Version 3)
Quarter: 2021Q3

REPORT INFORMATION
  Report Type: Report from Study
  Country: US (occurrence: US)
  Receive Date: 20200123
  Receipt Date: 20210818
  Transmission Date: 20211014
  Serious: No
  Sender: FDA-Public Use
  Company Number: NVSC2020US016781

PATIENT
  Age: 48 Year
  Sex: Female
  Weight: 72.5 kg

DRUGS (2)
  1. GILENYA [Suspect]
     Active Substance: FINGOLIMOD HYDROCHLORIDE
     Dosage: UNK UNK, UNKNOWN
     Route: 065
  2. GILENYA [Suspect]
     Active Substance: FINGOLIMOD HYDROCHLORIDE
     Indication: PRODUCT USED FOR UNKNOWN INDICATION
     Dosage: 0.5 MG, QD
     Route: 048
     Dates: start: 20160121

REACTIONS (3)
  - Product dose omission issue [Unknown]
  - Dysphagia [Unknown]
  - Throat lesion [Unknown]

NARRATIVE: CASE EVENT DATE: 20200121
